FAERS Safety Report 23787912 (Version 1)
Quarter: 2024Q2

REPORT INFORMATION
  Report Type: Spontaneous
  Country: CY (occurrence: CY)
  Receive Date: 20240426
  Receipt Date: 20240426
  Transmission Date: 20240716
  Serious: Yes (Other)
  Sender: FDA-Public Use
  Company Number: CY-TAKEDA-2024TUS038662

PATIENT
  Age: 26 Year
  Sex: Female

DRUGS (5)
  1. ENTYVIO [Suspect]
     Active Substance: VEDOLIZUMAB
     Indication: Crohn^s disease
     Dosage: 300 MILLIGRAM
     Route: 042
     Dates: start: 202311
  2. ENTYVIO [Suspect]
     Active Substance: VEDOLIZUMAB
     Dosage: UNK UNK, Q4WEEKS
     Route: 042
  3. Sideral [Concomitant]
     Dosage: UNK UNK, QD
     Route: 048
  4. Salofalk [Concomitant]
     Dosage: 2 GRAM, QD
     Route: 048
  5. PREDNISOLONE [Concomitant]
     Active Substance: PREDNISOLONE
     Dosage: 30 MILLIGRAM, QD
     Route: 048
     Dates: start: 20240209, end: 20240308

REACTIONS (6)
  - Large intestinal ulcer [Unknown]
  - Rectal ulcer [Unknown]
  - Large intestinal stenosis [Unknown]
  - Pulpless tooth [Unknown]
  - Tooth infection [Unknown]
  - Off label use [Unknown]
